FAERS Safety Report 17761710 (Version 1)
Quarter: 2020Q2

REPORT INFORMATION
  Report Type: Spontaneous
  Country: FR (occurrence: FR)
  Receive Date: 20200508
  Receipt Date: 20200508
  Transmission Date: 20200714
  Serious: Yes (Life-Threatening)
  Sender: FDA-Public Use
  Company Number: FR-CADILA HEALTHCARE LIMITED-FR-ZYDUS-026470

PATIENT

DRUGS (7)
  1. ESCITALOPRAM [Suspect]
     Active Substance: ESCITALOPRAM OXALATE
     Indication: PRODUCT USED FOR UNKNOWN INDICATION
     Dosage: UNKNOWN
     Route: 048
     Dates: start: 20180618, end: 20180618
  2. HAVLANE [Suspect]
     Active Substance: LOPRAZOLAM
     Indication: PRODUCT USED FOR UNKNOWN INDICATION
     Dosage: UNKNOWN
     Route: 048
     Dates: start: 20180618, end: 20180618
  3. TERCIAN [Suspect]
     Active Substance: CYAMEMAZINE
     Indication: PRODUCT USED FOR UNKNOWN INDICATION
     Dosage: UNKNOWN
     Route: 048
     Dates: start: 20180618, end: 20180618
  4. THERALENE [Suspect]
     Active Substance: TRIMEPRAZINE
     Indication: PRODUCT USED FOR UNKNOWN INDICATION
     Dosage: UNKNOWN
     Route: 048
     Dates: start: 20180618, end: 20180618
  5. METHADONE [Suspect]
     Active Substance: METHADONE HYDROCHLORIDE
     Indication: DRUG USE DISORDER
     Route: 048
     Dates: start: 20180618, end: 20180618
  6. MIRTAZAPINE. [Suspect]
     Active Substance: MIRTAZAPINE
     Indication: PRODUCT USED FOR UNKNOWN INDICATION
     Dosage: UNKNOWN
     Route: 048
     Dates: start: 20180618, end: 20180618
  7. ALPRAZOLAM. [Suspect]
     Active Substance: ALPRAZOLAM
     Indication: PRODUCT USED FOR UNKNOWN INDICATION
     Dosage: UNKNOWN
     Route: 048
     Dates: start: 20180618, end: 20180618

REACTIONS (4)
  - Toxicity to various agents [Recovered/Resolved]
  - Coma [Recovered/Resolved]
  - Rhabdomyolysis [Recovered/Resolved]
  - Pneumonia aspiration [Recovering/Resolving]

NARRATIVE: CASE EVENT DATE: 20180618
